FAERS Safety Report 7109928-5 (Version None)
Quarter: 2010Q4

REPORT INFORMATION
  Report Type: 
  Country: None (occurrence: None)
  Receive Date: 20101118
  Receipt Date: 20101109
  Transmission Date: 20110411
  Serious: Yes (Hospitalization)
  Sender: FDA-Public Use
  Company Number: MX-ASTRAZENECA-2010SE54155

PATIENT
  Age: 480 Month
  Sex: Female

DRUGS (3)
  1. SYMBICORT [Suspect]
     Indication: ASTHMA
     Dosage: FIVE SHOTS AT 11, 13, 17, 19 AND 22 HOURS
     Route: 055
     Dates: start: 20100912, end: 20100912
  2. SYMBICORT [Suspect]
     Dosage: 1 SHOT EVERY 12 HOURS
     Route: 055
     Dates: start: 20100913, end: 20100916
  3. DIPROSPAN VACCINE [Concomitant]
     Indication: RESPIRATORY DISORDER
     Dates: start: 20090101, end: 20090101

REACTIONS (8)
  - ANURIA [None]
  - BLOOD POTASSIUM DECREASED [None]
  - CARDIAC DISORDER [None]
  - GENERALISED OEDEMA [None]
  - PLATELET COUNT DECREASED [None]
  - RENAL FAILURE [None]
  - SOMNOLENCE [None]
  - WEIGHT INCREASED [None]
